FAERS Safety Report 5818201-4 (Version None)
Quarter: 2008Q3

REPORT INFORMATION
  Report Type: 
  Country: None (occurrence: None)
  Receive Date: 20080716
  Receipt Date: 20080710
  Transmission Date: 20090109
  Serious: Yes (Death)
  Sender: FDA-Public Use
  Company Number: 2008US001667

PATIENT
  Age: 54 Year
  Sex: Female

DRUGS (5)
  1. PROGRAF [Suspect]
     Indication: RENAL TRANSPLANT
     Dosage: ORAL
     Route: 048
     Dates: start: 20070601
  2. PREDNISOLONE ACETATE [Concomitant]
  3. ENALAPRIL MALEATE [Concomitant]
  4. LOVASTATIN [Concomitant]
  5. OMEPRAZOLE (OMEPRAZOLE SODIUM) [Concomitant]

REACTIONS (1)
  - SEPTIC SHOCK [None]
